FAERS Safety Report 14484181 (Version 2)
Quarter: 2018Q1

REPORT INFORMATION
  Report Type: Report from Study
  Country: US (occurrence: US)
  Receive Date: 20180205
  Receipt Date: 20180215
  Transmission Date: 20180509
  Serious: Yes (Hospitalization, Other)
  Sender: FDA-Public Use
  Company Number: US-AMGEN-USASL2018014187

PATIENT
  Age: 62 Year
  Sex: Female
  Weight: 74.92 kg

DRUGS (1)
  1. ENBREL [Suspect]
     Active Substance: ETANERCEPT
     Indication: RHEUMATOID ARTHRITIS
     Dosage: UNK, QWK
     Route: 058
     Dates: start: 20160624

REACTIONS (2)
  - Ill-defined disorder [Unknown]
  - Foot operation [Unknown]

NARRATIVE: CASE EVENT DATE: 201610
